FAERS Safety Report 5190442-1 (Version None)
Quarter: 2006Q4

REPORT INFORMATION
  Report Type: 
  Country: None (occurrence: None)
  Receive Date: 20061222
  Receipt Date: 20061214
  Transmission Date: 20070319
  Serious: Yes (Other)
  Sender: FDA-Public Use
  Company Number: US-ELI_LILLY_AND_COMPANY-US200612003455

PATIENT
  Age: 53 Year
  Sex: Male

DRUGS (9)
  1. DULOXETINE HYDROCHLORIDE [Suspect]
     Indication: DEPRESSION
     Dosage: 60 MG, DAILY (1/D)
  2. PREGABALIN [Concomitant]
     Dosage: 75 MG, 2/D
  3. BUPROPION HCL [Concomitant]
     Dosage: 300 MG, DAILY (1/D)
  4. OXYCODONE HCL [Concomitant]
     Indication: PAIN
     Dosage: 5 MG, EVERY 6 HRS
  5. HYDROMORPHONE HCL [Concomitant]
     Indication: PAIN
  6. VANCOMYCIN HCL [Concomitant]
     Indication: INFECTION
  7. PROPOFOL [Concomitant]
     Route: 042
  8. LORAZEPAM [Concomitant]
     Route: 042
  9. CYCLOBENZAPRINE HCL [Concomitant]
     Dosage: 10 MG, 3/D

REACTIONS (5)
  - DEVICE RELATED INFECTION [None]
  - DRUG INTERACTION [None]
  - HYPERNATRAEMIA [None]
  - LACTIC ACIDOSIS [None]
  - SEROTONIN SYNDROME [None]
